FAERS Safety Report 24329107 (Version 3)
Quarter: 2024Q3

REPORT INFORMATION
  Report Type: Other
  Country: US (occurrence: US)
  Receive Date: 20240917
  Receipt Date: 20240930
  Transmission Date: 20241017
  Serious: No
  Sender: TRAVERE THERAPEUTICS
  Company Number: US-TRAVERE-2024TVT00857

PATIENT
  Age: 50 Year
  Sex: Male

DRUGS (2)
  1. FILSPARI [Suspect]
     Active Substance: SPARSENTAN
     Indication: Product used for unknown indication
     Route: 048
     Dates: start: 20240807
  2. FILSPARI [Suspect]
     Active Substance: SPARSENTAN
     Dosage: 200MG EVERY OTHER DAY
     Route: 048

REACTIONS (3)
  - Dizziness [None]
  - Inappropriate schedule of product administration [Unknown]
  - Hypotension [Unknown]
